FAERS Safety Report 4680902-1 (Version None)
Quarter: 2005Q2

REPORT INFORMATION
  Report Type: 
  Country: None (occurrence: None)
  Receive Date: 20050531
  Receipt Date: 20050531
  Transmission Date: 20051028
  Serious: No
  Sender: FDA-Public Use
  Company Number: None

PATIENT
  Age: 83 Year
  Sex: Female

DRUGS (1)
  1. GABAPENTIN [Suspect]
     Indication: NEURALGIA
     Dosage: TAKE 1 CAPSULE EVERY 8 HOURS
     Dates: start: 20050516

REACTIONS (2)
  - DYSARTHRIA [None]
  - SOMNOLENCE [None]
